FAERS Safety Report 8846429 (Version 1)
Quarter: 2012Q4

REPORT INFORMATION
  Report Type: 
  Country: CI (occurrence: CI)
  Receive Date: 20121017
  Receipt Date: 20121017
  Transmission Date: 20130627
  Serious: Yes (Other)
  Sender: FDA-Public Use
  Company Number: CI-PFIZER INC-2012257122

PATIENT
  Age: 20 Year
  Sex: Female

DRUGS (1)
  1. LYRICA [Suspect]
     Indication: NEURALGIA
     Dosage: 150 mg, 1x/day
     Route: 048
     Dates: start: 201206

REACTIONS (1)
  - Hyperglycaemia [Unknown]
